FAERS Safety Report 24983830 (Version 1)
Quarter: 2025Q1

REPORT INFORMATION
  Report Type: Spontaneous
  Country: FR (occurrence: FR)
  Receive Date: 20250219
  Receipt Date: 20250219
  Transmission Date: 20250408
  Serious: Yes (Hospitalization, Other)
  Sender: AUROBINDO
  Company Number: FR-AFSSAPS-NY2025000138

PATIENT
  Age: 65 Year
  Sex: Female
  Weight: 106.8 kg

DRUGS (14)
  1. FUROSEMIDE [Interacting]
     Active Substance: FUROSEMIDE
     Indication: Essential hypertension
     Dosage: 20 MILLIGRAM, ONCE A DAY
     Route: 048
     Dates: start: 2022, end: 20230102
  2. FUROSEMIDE [Interacting]
     Active Substance: FUROSEMIDE
     Indication: Oedema peripheral
     Dosage: 40 MILLIGRAM, ONCE A DAY
     Route: 048
     Dates: start: 20230103, end: 20230106
  3. TERALITHE [Interacting]
     Active Substance: LITHIUM CARBONATE
     Indication: Bipolar disorder
     Dosage: 800 MILLIGRAM, ONCE A DAY (0-0-2)
     Route: 048
     Dates: start: 2014, end: 20230105
  4. TERALITHE [Interacting]
     Active Substance: LITHIUM CARBONATE
     Dosage: 400 MILLIGRAM, ONCE A DAY
     Route: 048
     Dates: start: 20230106, end: 20230106
  5. TERALITHE [Interacting]
     Active Substance: LITHIUM CARBONATE
     Dosage: 250 MILLIGRAM, ONCE A DAY
     Route: 048
     Dates: start: 20230107, end: 20230109
  6. CLOMIPRAMINE HYDROCHLORIDE [Concomitant]
     Active Substance: CLOMIPRAMINE HYDROCHLORIDE
     Indication: Depression
     Dosage: 225 MILLIGRAM, ONCE A DAY (0-0-3)
     Route: 048
     Dates: start: 2014
  7. ALDACTONE [Concomitant]
     Active Substance: SPIRONOLACTONE
     Indication: Essential hypertension
     Dosage: 25 MILLIGRAM, ONCE A DAY (1-0-0)
     Route: 048
     Dates: start: 2022
  8. HYDROCHLOROTHIAZIDE\VALSARTAN [Concomitant]
     Active Substance: HYDROCHLOROTHIAZIDE\VALSARTAN
     Indication: Essential hypertension
     Dosage: 1 DOSAGE FORM, ONCE A DAY (1-0-0)
     Route: 048
     Dates: start: 2014
  9. BISOPROLOL FUMARATE [Concomitant]
     Active Substance: BISOPROLOL FUMARATE
     Indication: Essential hypertension
     Dosage: 3.75 MILLIGRAM, ONCE A DAY (1-0-0)
     Route: 048
     Dates: start: 2022
  10. URAPIDIL [Concomitant]
     Active Substance: URAPIDIL
     Indication: Essential hypertension
     Dosage: 60 MILLIGRAM, TWO TIMES A DAY (1-0-1)
     Route: 048
     Dates: start: 2014
  11. LERCANIDIPINE [Concomitant]
     Active Substance: LERCANIDIPINE
     Indication: Essential hypertension
     Dosage: 10 MILLIGRAM, ONCE A DAY (1-0-0)
     Route: 048
     Dates: start: 2014
  12. KARDEGIC [Concomitant]
     Active Substance: ASPIRIN DL-LYSINE
     Indication: Cardiovascular event prophylaxis
     Dosage: 75 MILLIGRAM, ONCE A DAY (0-1-0)
     Route: 048
     Dates: start: 2014
  13. VESICARE [Concomitant]
     Active Substance: SOLIFENACIN SUCCINATE
     Indication: Urinary incontinence
     Dosage: 5 MILLIGRAM, ONCE A DAY (0-0-1)
     Route: 048
     Dates: start: 2017
  14. LEVOTHYROXINE SODIUM [Concomitant]
     Active Substance: LEVOTHYROXINE SODIUM
     Indication: Hypothyroidism
     Dosage: 25 MICROGRAM, ONCE A DAY (1-0-0)
     Route: 048
     Dates: start: 2022

REACTIONS (4)
  - Depressed level of consciousness [Recovered/Resolved]
  - Tremor [Recovered/Resolved]
  - Antipsychotic drug level above therapeutic [Recovered/Resolved]
  - Potentiating drug interaction [Recovered/Resolved]

NARRATIVE: CASE EVENT DATE: 20230103
